FAERS Safety Report 8102096-2 (Version None)
Quarter: 2012Q1

REPORT INFORMATION
  Report Type: 
  Country: None (occurrence: None)
  Receive Date: 20120131
  Receipt Date: 20120125
  Transmission Date: 20120608
  Serious: Yes (Hospitalization)
  Sender: FDA-Public Use
  Company Number: CH-MERCK-1201USA03458

PATIENT
  Age: 56 Year
  Sex: Male

DRUGS (3)
  1. SERETIDE [Concomitant]
     Indication: ASTHMA
     Route: 055
  2. SINGULAIR [Suspect]
     Indication: ASTHMA
     Route: 065
     Dates: start: 20100908, end: 20101001
  3. SPIRIVA [Concomitant]
     Indication: ASTHMA
     Route: 055

REACTIONS (3)
  - POLYNEUROPATHY [None]
  - ALLERGIC GRANULOMATOUS ANGIITIS [None]
  - EOSINOPHILIA [None]
